FAERS Safety Report 23398397 (Version 1)
Quarter: 2024Q1

REPORT INFORMATION
  Report Type: Spontaneous
  Country: US (occurrence: None)
  Receive Date: 20240112
  Receipt Date: 20240112
  Transmission Date: 20240410
  Serious: Yes (Life-Threatening, Hospitalization)
  Sender: FDA-Public Use
  Company Number: None

PATIENT
  Age: 64 Year
  Sex: 0

DRUGS (5)
  1. TERIFLUNOMIDE [Suspect]
     Active Substance: TERIFLUNOMIDE
  2. ELIQUIS [Concomitant]
     Active Substance: APIXABAN
  3. FLUTICASONE [Concomitant]
     Active Substance: FLUTICASONE
  4. NURTEC ODT [Concomitant]
     Active Substance: RIMEGEPANT SULFATE
  5. ZINC [Concomitant]
     Active Substance: PYRITHIONE ZINC\ZINC\ZINC CHLORIDE

REACTIONS (8)
  - Cerebrovascular accident [None]
  - Disease recurrence [None]
  - Fatigue [None]
  - Pain in extremity [None]
  - Pain in extremity [None]
  - Magnetic resonance imaging abnormal [None]
  - Memory impairment [None]
  - Condition aggravated [None]

NARRATIVE: CASE EVENT DATE: 20240112
